FAERS Safety Report 5788991-8 (Version None)
Quarter: 2008Q2

REPORT INFORMATION
  Report Type: 
  Country: None (occurrence: None)
  Receive Date: 20080625
  Receipt Date: 20080625
  Transmission Date: 20081010
  Serious: Yes (Life-Threatening)
  Sender: FDA-Public Use
  Company Number: None

PATIENT
  Age: 86 Year
  Sex: Female

DRUGS (8)
  1. NEXIUM [Suspect]
     Indication: GASTROOESOPHAGEAL REFLUX DISEASE
     Dosage: ORAL;40.0 MILLIGRAM
     Route: 048
     Dates: start: 20080401, end: 20080402
  2. CARVEDIOLOL [Concomitant]
  3. ALLOPURINOL [Concomitant]
  4. COLACE [Concomitant]
  5. FUROSEMIDE [Concomitant]
  6. ASCORBIC ACID [Concomitant]
  7. FERROUS SULFATE TAB [Concomitant]
  8. BRIMONIDINE TARTRATE [Concomitant]

REACTIONS (3)
  - LIVER DISORDER [None]
  - REFUSAL OF TREATMENT BY PATIENT [None]
  - THROMBOCYTOPENIA [None]
